FAERS Safety Report 12326068 (Version 1)
Quarter: 2016Q2

REPORT INFORMATION
  Report Type: Spontaneous
  Country: US (occurrence: US)
  Receive Date: 20160503
  Receipt Date: 20160503
  Transmission Date: 20160815
  Serious: Yes (Hospitalization, Other)
  Sender: FDA-Public Use
  Company Number: US-CIPLA-2016US04278

PATIENT

DRUGS (2)
  1. WARFARIN [Suspect]
     Active Substance: WARFARIN
     Dosage: 28.6% OF WEEKLY PRE-OPERATIVE DOSE
  2. WARFARIN [Suspect]
     Active Substance: WARFARIN
     Dosage: 89.3% OF WEEKLY PRE-OPERATIVE DOSE

REACTIONS (6)
  - Melaena [Unknown]
  - Fatigue [Unknown]
  - Gastrointestinal haemorrhage [Unknown]
  - Hepatic enzyme increased [Unknown]
  - Diarrhoea [Unknown]
  - International normalised ratio increased [Unknown]
